FAERS Safety Report 16656868 (Version 2)
Quarter: 2019Q3

REPORT INFORMATION
  Report Type: Report from Study
  Country: IT (occurrence: IT)
  Receive Date: 20190801
  Receipt Date: 20190904
  Transmission Date: 20191004
  Serious: Yes (Hospitalization, Other)
  Sender: FDA-Public Use
  Company Number: IT-AMGEN-ITACT2019120802

PATIENT
  Age: 51 Year
  Sex: Male

DRUGS (8)
  1. AMIKACINE [AMIKACIN] [Concomitant]
     Active Substance: AMIKACIN
     Dosage: 1 GRAM, QD
  2. PLATELETS [Concomitant]
     Active Substance: HUMAN PLATELET, ALLOGENIC
     Dosage: UNK
  3. CYTARABINE. [Suspect]
     Active Substance: CYTARABINE
     Indication: ACUTE LYMPHOCYTIC LEUKAEMIA
     Dosage: 8000 MILLIGRAM
     Route: 042
     Dates: start: 20190517, end: 20190518
  4. TAZOCIN [Concomitant]
     Active Substance: PIPERACILLIN SODIUM\TAZOBACTAM SODIUM
     Dosage: 4.5 GRAM, QID
  5. BLINATUMOMAB [Suspect]
     Active Substance: BLINATUMOMAB
     Indication: ACUTE LYMPHOCYTIC LEUKAEMIA
     Dosage: UNK
     Route: 065
  6. UGUROL [Concomitant]
     Active Substance: TRANEXAMIC ACID
     Dosage: 2 FL, QID
  7. FILGRASTIM [Concomitant]
     Active Substance: FILGRASTIM
     Dosage: 1 FL, BID
     Dates: start: 20190522
  8. METOTREXATE [Suspect]
     Active Substance: METHOTREXATE SODIUM
     Indication: ACUTE LYMPHOCYTIC LEUKAEMIA
     Dosage: 5000 MILLIGRAM
     Route: 042
     Dates: start: 20190515

REACTIONS (3)
  - Febrile neutropenia [Not Recovered/Not Resolved]
  - Escherichia bacteraemia [Not Recovered/Not Resolved]
  - Cerebral haemorrhage [Recovered/Resolved]

NARRATIVE: CASE EVENT DATE: 20190527
